FAERS Safety Report 5057664-1 (Version None)
Quarter: 2006Q3

REPORT INFORMATION
  Report Type: 
  Country: None (occurrence: None)
  Receive Date: 20060721
  Receipt Date: 20060111
  Transmission Date: 20061208
  Serious: No
  Sender: FDA-Public Use
  Company Number: US-GLAXOSMITHKLINE-A0588787A

PATIENT
  Sex: Male

DRUGS (6)
  1. AVANDIA [Suspect]
     Route: 048
  2. LIPITOR [Concomitant]
  3. DEPAKOTE [Concomitant]
  4. HYDROCHLOROTHIAZIDE [Concomitant]
  5. ALTACE [Concomitant]
  6. DICYCLOMINE [Concomitant]

REACTIONS (1)
  - DRUG INEFFECTIVE [None]
